FAERS Safety Report 6706556-8 (Version None)
Quarter: 2010Q2

REPORT INFORMATION
  Report Type: 
  Country: None (occurrence: None)
  Receive Date: 20100503
  Receipt Date: 20100423
  Transmission Date: 20101027
  Serious: Yes (Other)
  Sender: FDA-Public Use
  Company Number: AU-ASTRAZENECA-2010SE18149

PATIENT
  Sex: Male

DRUGS (2)
  1. QUETIAPINE [Suspect]
     Indication: SCHIZOPHRENIA
     Dosage: DOSE UNKNOWN, INTERMITTENT TREATMENT
     Route: 048
  2. QUETIAPINE [Suspect]
     Indication: PSYCHOTIC DISORDER
     Dosage: DOSE UNKNOWN, INTERMITTENT TREATMENT
     Route: 048

REACTIONS (4)
  - DRUG ABUSE [None]
  - DRUG DEPENDENCE [None]
  - FACTITIOUS DISORDER [None]
  - WITHDRAWAL SYNDROME [None]
